FAERS Safety Report 8344183-X (Version None)
Quarter: 2012Q2

REPORT INFORMATION
  Report Type: 
  Country: None (occurrence: None)
  Receive Date: 20120508
  Receipt Date: 20110222
  Transmission Date: 20120825
  Serious: Yes (Other)
  Sender: FDA-Public Use
  Company Number: US-TEVA-2011000846

PATIENT
  Sex: Female
  Weight: 56.75 kg

DRUGS (4)
  1. PREDNISONE TAB [Concomitant]
  2. TREANDA [Suspect]
     Indication: NON-HODGKIN'S LYMPHOMA
     Route: 041
     Dates: start: 20101201
  3. SYNTHROID [Concomitant]
     Dates: start: 19960101
  4. RITUXIMAB [Suspect]
     Indication: NON-HODGKIN'S LYMPHOMA

REACTIONS (4)
  - RASH [None]
  - PRURITUS [None]
  - CHILLS [None]
  - PYREXIA [None]
